FAERS Safety Report 21350245 (Version 1)
Quarter: 2022Q3

REPORT INFORMATION
  Report Type: Spontaneous
  Country: US (occurrence: US)
  Receive Date: 20220919
  Receipt Date: 20220919
  Transmission Date: 20221027
  Serious: No
  Sender: FDA-Public Use
  Company Number: US-SANOFI-00981245

PATIENT
  Age: 65 Year
  Sex: Female

DRUGS (3)
  1. DUPIXENT [Suspect]
     Active Substance: DUPILUMAB
     Indication: Pemphigoid
     Dosage: DRUG INTERVAL DOSAGE : EVERY OTHER WEEK
  2. DUPIXENT [Suspect]
     Active Substance: DUPILUMAB
     Indication: Eczema
  3. PRALUENT [Suspect]
     Active Substance: ALIROCUMAB

REACTIONS (2)
  - Skin injury [Not Recovered/Not Resolved]
  - Product use in unapproved indication [Unknown]
